FAERS Safety Report 26131441 (Version 1)
Quarter: 2025Q4

REPORT INFORMATION
  Report Type: Spontaneous
  Country: US (occurrence: US)
  Receive Date: 20251208
  Receipt Date: 20251208
  Transmission Date: 20260117
  Serious: Yes (Other)
  Sender: PURDUE
  Company Number: US-PURDUE-USA-2025-0322680

PATIENT
  Age: 30 Year
  Sex: Female

DRUGS (2)
  1. DEXTROAMPHETAMINE SACCHARATE, AMPHETAMINE ASPARTATE, DEXTROAMPHETAMINE [Suspect]
     Active Substance: AMPHETAMINE ASPARTATE\AMPHETAMINE SULFATE\DEXTROAMPHETAMINE SACCHARATE\DEXTROAMPHETAMINE SULFATE
     Indication: Product used for unknown indication
     Dosage: UNK
     Route: 042
  2. FENTANYL [Suspect]
     Active Substance: FENTANYL
     Indication: Product used for unknown indication
     Dosage: UNK
     Route: 042

REACTIONS (14)
  - Substance use disorder [Unknown]
  - Cellulitis staphylococcal [Unknown]
  - Wound necrosis [Unknown]
  - Drug abuse [Unknown]
  - Abscess [Unknown]
  - Anxiety [Unknown]
  - Depression [Unknown]
  - Skin ulcer [Unknown]
  - Pain in extremity [Unknown]
  - Peripheral swelling [Unknown]
  - Drug screen positive [Unknown]
  - Feeling jittery [Unknown]
  - Hyperhidrosis [Unknown]
  - Tremor [Unknown]
